FAERS Safety Report 4994412-5 (Version None)
Quarter: 2006Q1

REPORT INFORMATION
  Report Type: 
  Country: None (occurrence: None)
  Receive Date: 20060313
  Receipt Date: 20051102
  Transmission Date: 20060701
  Serious: No
  Sender: FDA-Public Use
  Company Number: 2005-BP-19262BP

PATIENT
  Sex: Female

DRUGS (1)
  1. SPIRIVA [Suspect]
     Dosage: NR (18 MCG) IH
     Route: 055

REACTIONS (3)
  - DRY MOUTH [None]
  - MIGRAINE [None]
  - VISION BLURRED [None]
